FAERS Safety Report 15991076 (Version 2)
Quarter: 2019Q2

REPORT INFORMATION
  Report Type: Spontaneous
  Country: JP (occurrence: JP)
  Receive Date: 20190221
  Receipt Date: 20190402
  Transmission Date: 20190711
  Serious: Yes (Death)
  Sender: FDA-Public Use
  Company Number: JP-ASTELLAS-2019JP000369

PATIENT
  Age: 16 Year
  Sex: Female

DRUGS (7)
  1. VORICONAZOLE. [Concomitant]
     Active Substance: VORICONAZOLE
     Indication: PRODUCT USED FOR UNKNOWN INDICATION
     Dosage: UNK UNK, UNKNOWN FREQ.
     Route: 048
  2. XOSPATA [Suspect]
     Active Substance: GILTERITINIB
     Dosage: UNK UNK, UNKNOWN FREQ.
     Route: 048
  3. AMBISOME [Concomitant]
     Active Substance: AMPHOTERICIN B
     Indication: PRODUCT USED FOR UNKNOWN INDICATION
     Dosage: UNK UNK, UNKNOWN FREQ.
     Route: 065
  4. STARASID [Concomitant]
     Active Substance: CYTARABINE OCFOSFATE
     Indication: PRODUCT USED FOR UNKNOWN INDICATION
     Dosage: UNK UNK, UNKNOWN FREQ.
     Route: 048
  5. XOSPATA [Suspect]
     Active Substance: GILTERITINIB
     Route: 048
  6. XOSPATA [Suspect]
     Active Substance: GILTERITINIB
     Route: 048
  7. XOSPATA [Suspect]
     Active Substance: GILTERITINIB
     Indication: ACUTE MYELOID LEUKAEMIA
     Route: 048

REACTIONS (5)
  - Intestinal haemorrhage [Fatal]
  - Electrocardiogram QT prolonged [Recovered/Resolved]
  - Blood creatine phosphokinase increased [Recovered/Resolved]
  - Pyrexia [Recovered/Resolved]
  - Diarrhoea [Not Recovered/Not Resolved]

NARRATIVE: CASE EVENT DATE: 20190116
